FAERS Safety Report 9759026 (Version 3)
Quarter: 2014Q4

REPORT INFORMATION
  Report Type: Spontaneous
  Country: US (occurrence: US)
  Receive Date: 20131216
  Receipt Date: 20141107
  Transmission Date: 20150529
  Serious: Yes (Life-Threatening, Congenital Anomaly, Other)
  Sender: FDA-Public Use
  Company Number: US-ELI_LILLY_AND_COMPANY-US201312003276

PATIENT
  Age: 0 Day

DRUGS (1)
  1. PROZAC [Suspect]
     Active Substance: FLUOXETINE HYDROCHLORIDE
     Indication: PRODUCT USED FOR UNKNOWN INDICATION
     Dosage: 1 DF, UNKNOWN
     Route: 064

REACTIONS (9)
  - Pericardial effusion [Recovered/Resolved]
  - Neonatal hypotension [Recovered/Resolved]
  - Persistent foetal circulation [Recovered/Resolved]
  - Tricuspid valve incompetence [Recovered/Resolved]
  - Foetal exposure timing unspecified [Recovered/Resolved]
  - Sepsis neonatal [Recovered/Resolved]
  - Cardiopulmonary failure [Recovered/Resolved]
  - Congenital cardiovascular anomaly [Recovered/Resolved]
  - Hypovolaemia [Recovered/Resolved]

NARRATIVE: CASE EVENT DATE: 20000612
